FAERS Safety Report 10431397 (Version 2)
Quarter: 2014Q4

REPORT INFORMATION
  Report Type: Spontaneous
  Country: US (occurrence: US)
  Receive Date: 20140904
  Receipt Date: 20141107
  Transmission Date: 20150528
  Serious: Yes (Hospitalization, Other)
  Sender: FDA-Public Use
  Company Number: US-GLAXOSMITHKLINE-A1087278A

PATIENT
  Sex: Female

DRUGS (16)
  1. LOVASTATIN. [Concomitant]
     Active Substance: LOVASTATIN
  2. CALCIUM [Concomitant]
     Active Substance: CALCIUM
  3. ADVAIR HFA [Suspect]
     Active Substance: FLUTICASONE PROPIONATE\SALMETEROL XINAFOATE
     Indication: CARDIAC FAILURE CONGESTIVE
  4. CARVEDILOL. [Suspect]
     Active Substance: CARVEDILOL
     Indication: CARDIAC FAILURE CONGESTIVE
     Dosage: UNKNOWN STRENGTH UNKNOWN DOSING
     Route: 065
  5. BIPAP [Suspect]
     Active Substance: DEVICE
  6. EYE DROPS [Concomitant]
     Active Substance: TETRAHYDROZOLINE HYDROCHLORIDE
  7. COUMADIN [Concomitant]
     Active Substance: WARFARIN SODIUM
  8. ALBUTEROL. [Concomitant]
     Active Substance: ALBUTEROL
     Route: 065
  9. ALBUTEROL. [Concomitant]
     Active Substance: ALBUTEROL
     Route: 065
  10. LISINOPRIL. [Concomitant]
     Active Substance: LISINOPRIL
  11. DIGOXIN. [Concomitant]
     Active Substance: DIGOXIN
  12. UNSPECIFIED MEDICATION [Concomitant]
     Active Substance: UNSPECIFIED INGREDIENT
  13. SPIRIVA [Suspect]
     Active Substance: TIOTROPIUM BROMIDE MONOHYDRATE
     Indication: PRODUCT USED FOR UNKNOWN INDICATION
     Route: 065
  14. ADVAIR HFA [Suspect]
     Active Substance: FLUTICASONE PROPIONATE\SALMETEROL XINAFOATE
     Indication: ASTHMA
     Dosage: 1 PUFF(S), BID
  15. COREG [Suspect]
     Active Substance: CARVEDILOL
     Indication: CARDIAC FAILURE CONGESTIVE
     Dosage: UNKNOWN STRENGTH UNKNOWN DOSING
     Route: 065
  16. SINGULAIR [Concomitant]
     Active Substance: MONTELUKAST SODIUM

REACTIONS (6)
  - Cardiac failure [Recovering/Resolving]
  - Blood carbon monoxide increased [Recovering/Resolving]
  - Cough [Recovering/Resolving]
  - Loss of consciousness [Recovering/Resolving]
  - Disorientation [Recovering/Resolving]
  - Wheezing [Recovered/Resolved]
